FAERS Safety Report 24281599 (Version 2)
Quarter: 2024Q3

REPORT INFORMATION
  Report Type: Spontaneous
  Country: US (occurrence: US)
  Receive Date: 20240904
  Receipt Date: 20240905
  Transmission Date: 20241017
  Serious: No
  Sender: PFIZER
  Company Number: US-PFIZER INC-202400244207

PATIENT
  Age: 13 Year
  Sex: Male
  Weight: 33.57 kg

DRUGS (1)
  1. GENOTROPIN [Suspect]
     Active Substance: SOMATROPIN
     Indication: Growth hormone deficiency
     Dosage: 1.4 MG, 1X/DAY (INJECTED DAILY; ONCE A DAY, SEVEN DAYS FOR WEEK)
     Route: 051
     Dates: start: 202404

REACTIONS (4)
  - Device physical property issue [Unknown]
  - Device information output issue [Unknown]
  - Device malfunction [Unknown]
  - Drug dose omission by device [Unknown]

NARRATIVE: CASE EVENT DATE: 20240801
